FAERS Safety Report 10240616 (Version 1)
Quarter: 2014Q2

REPORT INFORMATION
  Report Type: Spontaneous
  Country: US (occurrence: None)
  Receive Date: 20140613
  Receipt Date: 20140613
  Transmission Date: 20141212
  Serious: No
  Sender: FDA-Public Use
  Company Number: None

PATIENT
  Age: 64 Year
  Sex: Male
  Weight: 79.38 kg

DRUGS (1)
  1. TRIAMTERENE/HYDROCHLOROTHIAZIDE [Suspect]
     Indication: BLOOD PRESSURE
     Route: 048

REACTIONS (12)
  - Dry mouth [None]
  - Multiple allergies [None]
  - Sinus disorder [None]
  - Burning sensation [None]
  - Hypoaesthesia [None]
  - Paraesthesia [None]
  - Rash [None]
  - Pruritus [None]
  - Eye pain [None]
  - Lip swelling [None]
  - Swollen tongue [None]
  - Flushing [None]
